FAERS Safety Report 26145812 (Version 1)
Quarter: 2025Q4

REPORT INFORMATION
  Report Type: Spontaneous
  Country: US (occurrence: US)
  Receive Date: 20251211
  Receipt Date: 20251211
  Transmission Date: 20260118
  Serious: No
  Sender: GERON CORP
  Company Number: US-GERON-INTAKE-US-2110-2025

PATIENT
  Age: 64 Year
  Sex: Male

DRUGS (1)
  1. RYTELO [Suspect]
     Active Substance: IMETELSTAT SODIUM
     Indication: Product used for unknown indication
     Dosage: UNK MILLIGRAM/KILOGRAM, UNK
     Route: 042
     Dates: end: 202508

REACTIONS (1)
  - Therapeutic response shortened [Recovered/Resolved]
